FAERS Safety Report 4735819-0 (Version None)
Quarter: 2005Q3

REPORT INFORMATION
  Report Type: 
  Country: None (occurrence: None)
  Receive Date: 20050805
  Receipt Date: 20050420
  Transmission Date: 20060218
  Serious: Yes (Hospitalization)
  Sender: FDA-Public Use
  Company Number: 2005AP02449

PATIENT
  Age: 28857 Day
  Sex: Female

DRUGS (5)
  1. IRESSA [Suspect]
     Indication: LUNG NEOPLASM MALIGNANT
     Route: 048
     Dates: start: 20050413, end: 20050421
  2. GLYBURIDE [Concomitant]
     Route: 048
  3. ACTOS [Concomitant]
     Route: 048
  4. BETA-BLOCKING AGENTS [Concomitant]
  5. PACLITAXEL [Concomitant]
     Dosage: GIVEN ON DAY 1, 8, 15 AND 21
     Dates: start: 20050201

REACTIONS (1)
  - HYPOGLYCAEMIA [None]
